FAERS Safety Report 25712958 (Version 1)
Quarter: 2025Q3

REPORT INFORMATION
  Report Type: Spontaneous
  Country: JP (occurrence: JP)
  Receive Date: 20250821
  Receipt Date: 20250821
  Transmission Date: 20251020
  Serious: Yes (Hospitalization, Other)
  Sender: GLAXOSMITHKLINE
  Company Number: JP-GSKJP-JP2025JPN106922AA

PATIENT
  Age: 84 Year
  Sex: Male

DRUGS (1)
  1. DAPRODUSTAT [Suspect]
     Active Substance: DAPRODUSTAT

REACTIONS (10)
  - Cholangiocarcinoma [Not Recovered/Not Resolved]
  - Bile duct cancer [Not Recovered/Not Resolved]
  - Angina pectoris [Unknown]
  - End stage renal disease [Unknown]
  - Nausea [Unknown]
  - Abdominal pain upper [Unknown]
  - Sepsis [Unknown]
  - Cholecystitis [Unknown]
  - Haemoglobin decreased [Unknown]
  - Haemodialysis [Unknown]

NARRATIVE: CASE EVENT DATE: 20250601
